FAERS Safety Report 13597327 (Version 1)
Quarter: 2017Q2

REPORT INFORMATION
  Report Type: Spontaneous
  Country: JP (occurrence: JP)
  Receive Date: 20170531
  Receipt Date: 20170531
  Transmission Date: 20170830
  Serious: Yes (Other)
  Sender: FDA-Public Use
  Company Number: JP-GLAXOSMITHKLINE-JP2017JPN021590

PATIENT
  Age: 63 Year
  Sex: Male

DRUGS (2)
  1. RELENZA [Suspect]
     Active Substance: ZANAMIVIR
     Indication: INFLUENZA
     Dosage: 10 MG, BID
     Route: 055
     Dates: start: 20170209, end: 20170212
  2. MAINTATE [Concomitant]
     Active Substance: BISOPROLOL FUMARATE
     Indication: HYPERTENSION
     Dosage: UNK

REACTIONS (4)
  - Face oedema [Recovered/Resolved]
  - Sensory disturbance [Not Recovered/Not Resolved]
  - Encephalitis [Unknown]
  - Cerebrovascular disorder [Unknown]

NARRATIVE: CASE EVENT DATE: 20170209
